FAERS Safety Report 7707670-0 (Version None)
Quarter: 2011Q3

REPORT INFORMATION
  Report Type: 
  Country: None (occurrence: None)
  Receive Date: 20110824
  Receipt Date: 20110817
  Transmission Date: 20111222
  Serious: Yes (Other)
  Sender: FDA-Public Use
  Company Number: PHHY2011GB73576

PATIENT
  Sex: Male

DRUGS (2)
  1. SODIUM CHLORIDE [Suspect]
     Dosage: 250 ML, UNK
     Route: 065
  2. PACLITAXEL [Suspect]
     Dosage: 140 MG, UNK
     Route: 065

REACTIONS (3)
  - BONE PAIN [None]
  - FEELING HOT [None]
  - ERYTHEMA [None]
